FAERS Safety Report 8483861 (Version 2)
Quarter: 2014Q2

REPORT INFORMATION
  Report Type: Spontaneous
  Country: US (occurrence: US)
  Receive Date: 20120329
  Receipt Date: 20140527
  Transmission Date: 20141212
  Serious: Yes (Other)
  Sender: FDA-Public Use
  Company Number: US-ASTRAZENECA-2012SE19492

PATIENT
  Age: 75 Year
  Sex: Female
  Weight: 80.7 kg

DRUGS (4)
  1. ATACAND [Suspect]
     Indication: BLOOD PRESSURE
     Route: 048
  2. ATACAND HCT [Suspect]
     Indication: HYPERTENSION
     Route: 048
  3. NEXIUM [Suspect]
     Indication: GASTROOESOPHAGEAL REFLUX DISEASE
     Route: 048
  4. TOPROL XL [Suspect]
     Indication: BLOOD PRESSURE
     Route: 048

REACTIONS (7)
  - Cholelithiasis [Unknown]
  - Pain [Unknown]
  - Hypertension [Unknown]
  - Gastritis erosive [Unknown]
  - Blood sodium decreased [Unknown]
  - Intentional product misuse [Unknown]
  - Drug ineffective [Unknown]
